FAERS Safety Report 19416158 (Version 1)
Quarter: 2021Q2

REPORT INFORMATION
  Report Type: Spontaneous
  Country: US (occurrence: US)
  Receive Date: 20210615
  Receipt Date: 20210615
  Transmission Date: 20210717
  Serious: No
  Sender: FDA-Public Use
  Company Number: US-ALLERGAN-2036850US

PATIENT
  Age: 23 Year
  Sex: Female

DRUGS (4)
  1. JAX INHIBITOR [Concomitant]
  2. BIRTH CONTROL [Concomitant]
     Active Substance: UNSPECIFIED INGREDIENT
  3. KYBELLA [Suspect]
     Active Substance: DEOXYCHOLIC ACID
     Indication: FAT TISSUE INCREASED
     Dosage: UNK, SINGLE
     Route: 058
     Dates: start: 20200922, end: 20200922
  4. ANTI?DEPRESSANT [Concomitant]
     Active Substance: UNSPECIFIED INGREDIENT
     Indication: DEPRESSION

REACTIONS (2)
  - Wrong technique in product usage process [Unknown]
  - Injection site swelling [Not Recovered/Not Resolved]
